FAERS Safety Report 8808959 (Version 1)
Quarter: 2012Q4

REPORT INFORMATION
  Report Type: Spontaneous
  Country: US (occurrence: None)
  Receive Date: 20120920
  Receipt Date: 20120920
  Transmission Date: 20130627
  Serious: No
  Sender: FDA-Public Use
  Company Number: None

PATIENT

DRUGS (1)
  1. HYDROCORTISONE [Suspect]
     Dosage: cream, topical, 1%, unit package, 0.9 gm
     Route: 061

REACTIONS (1)
  - Product label issue [None]
